FAERS Safety Report 10685336 (Version 3)
Quarter: 2015Q1

REPORT INFORMATION
  Report Type: Spontaneous
  Country: US (occurrence: US)
  Receive Date: 20141231
  Receipt Date: 20150210
  Transmission Date: 20150720
  Serious: No
  Sender: FDA-Public Use
  Company Number: US-GLAXOSMITHKLINE-A1085190A

PATIENT

DRUGS (3)
  1. ALTACE [Concomitant]
     Active Substance: RAMIPRIL
  2. TYKERB [Suspect]
     Active Substance: LAPATINIB DITOSYLATE
     Indication: BREAST CANCER
     Dosage: 250 MG
     Route: 048
     Dates: start: 20140801, end: 20140806
  3. CAPECITABINE. [Concomitant]
     Active Substance: CAPECITABINE

REACTIONS (3)
  - Pharyngeal erythema [Recovered/Resolved]
  - Oropharyngeal pain [Recovered/Resolved]
  - Lip ulceration [Recovered/Resolved]

NARRATIVE: CASE EVENT DATE: 20140806
